FAERS Safety Report 6753349-1 (Version None)
Quarter: 2010Q2

REPORT INFORMATION
  Report Type: 
  Country: None (occurrence: None)
  Receive Date: 20100520
  Receipt Date: 20100429
  Transmission Date: 20101027
  Serious: Yes (Other)
  Sender: FDA-Public Use
  Company Number: 2009207057

PATIENT
  Age: 54 Year
  Sex: Female
  Weight: 90 kg

DRUGS (10)
  1. PROVERA [Suspect]
     Indication: MENOPAUSE
     Dosage: UNK, ORAL
     Route: 048
     Dates: start: 19910601, end: 19960701
  2. PREMARIN [Suspect]
     Indication: MENOPAUSE
     Dosage: UNK
     Dates: start: 19950201, end: 19960701
  3. PREMPRO [Suspect]
     Indication: MENOPAUSE
  4. ACTOS [Concomitant]
  5. GLUCOPHAGE [Concomitant]
  6. VIOXX [Concomitant]
  7. NEXIUM [Concomitant]
  8. SYNTHROID [Concomitant]
  9. LIPITOR [Concomitant]
  10. GLUCOVANCE [Concomitant]

REACTIONS (1)
  - BREAST CANCER FEMALE [None]
